FAERS Safety Report 24122639 (Version 8)
Quarter: 2025Q3

REPORT INFORMATION
  Report Type: Report from Study
  Country: US (occurrence: US)
  Receive Date: 20240723
  Receipt Date: 20250711
  Transmission Date: 20251021
  Serious: Yes (Hospitalization, Other)
  Sender: TAKEDA
  Company Number: US-TAKEDA-US201935889

PATIENT
  Age: 78 Year
  Sex: Female
  Weight: 64 kg

DRUGS (26)
  1. LANADELUMAB [Suspect]
     Active Substance: LANADELUMAB
     Indication: Immune system disorder
     Dosage: UNK UNK, Q2WEEKS
     Dates: start: 20180914
  2. LANADELUMAB [Suspect]
     Active Substance: LANADELUMAB
     Indication: Hereditary angioedema
  3. LANADELUMAB [Suspect]
     Active Substance: LANADELUMAB
     Dosage: 300 MILLIGRAM, Q2WEEKS
  4. LANADELUMAB [Suspect]
     Active Substance: LANADELUMAB
     Dosage: UNK UNK, Q2WEEKS
  5. LANADELUMAB [Suspect]
     Active Substance: LANADELUMAB
     Dosage: 300 MILLIGRAM, Q2WEEKS
  6. SODIUM CHLORIDE [Concomitant]
     Active Substance: SODIUM CHLORIDE
  7. BERINERT [Concomitant]
     Active Substance: HUMAN C1-ESTERASE INHIBITOR
  8. EPINEPHRINE [Concomitant]
     Active Substance: EPINEPHRINE
  9. ADVIL [Concomitant]
     Active Substance: IBUPROFEN
  10. GLUCOSAMINE [Concomitant]
     Active Substance: GLUCOSAMINE
  11. MINERALS\VITAMINS [Concomitant]
     Active Substance: MINERALS\VITAMINS
  12. ESTRADIOL [Concomitant]
     Active Substance: ESTRADIOL
  13. LIOTHYRONINE SODIUM [Concomitant]
     Active Substance: LIOTHYRONINE SODIUM
  14. SYNTHROID [Concomitant]
     Active Substance: LEVOTHYROXINE SODIUM
  15. HYDROCHLOROTHIAZIDE [Concomitant]
     Active Substance: HYDROCHLOROTHIAZIDE
  16. MAGNESIUM [Concomitant]
     Active Substance: MAGNESIUM
  17. POTASSIUM CHLORIDE [Concomitant]
     Active Substance: POTASSIUM CHLORIDE
  18. TIMOLOL MALEATE [Concomitant]
     Active Substance: TIMOLOL MALEATE
  19. MAGNESIUM OXIDE [Concomitant]
     Active Substance: MAGNESIUM OXIDE
  20. ZYRTEC [Concomitant]
     Active Substance: CETIRIZINE HYDROCHLORIDE
  21. TYLENOL EXTRA STRENGTH [Concomitant]
     Active Substance: ACETAMINOPHEN
  22. TIMOLOL [Concomitant]
     Active Substance: TIMOLOL
  23. XOLAIR [Concomitant]
     Active Substance: OMALIZUMAB
  24. MIRALAX [Concomitant]
     Active Substance: POLYETHYLENE GLYCOL 3350
  25. METAMUCIL [Concomitant]
     Active Substance: PLANTAGO SEED
  26. LEVOTHYROXINE SODIUM [Concomitant]
     Active Substance: LEVOTHYROXINE SODIUM

REACTIONS (13)
  - Precancerous condition [Unknown]
  - Vaginal prolapse [Unknown]
  - Drug ineffective [Unknown]
  - Inappropriate schedule of product administration [Recovered/Resolved]
  - Arthritis [Unknown]
  - Infusion related reaction [Unknown]
  - Urticaria [Unknown]
  - Swelling [Unknown]
  - Gastrointestinal disorder [Unknown]
  - Product dose omission issue [Recovered/Resolved]
  - Hereditary angioedema [Not Recovered/Not Resolved]
  - Injection site pain [Unknown]
  - Female reproductive tract disorder [Unknown]

NARRATIVE: CASE EVENT DATE: 20191021
